FAERS Safety Report 19934202 (Version 1)
Quarter: 2021Q4

REPORT INFORMATION
  Report Type: Other
  Country: CA (occurrence: CA)
  Receive Date: 20211008
  Receipt Date: 20211008
  Transmission Date: 20220303
  Serious: Yes (Other)
  Sender: FDA-Public Use
  Company Number: CA-APOTEX-2021AP043675

PATIENT

DRUGS (8)
  1. GEMCITABINE [Suspect]
     Active Substance: GEMCITABINE
     Indication: Undifferentiated sarcoma
     Dosage: UNK
     Route: 065
  2. CYCLOPHOSPHAMIDE [Suspect]
     Active Substance: CYCLOPHOSPHAMIDE
     Indication: Undifferentiated sarcoma
     Dosage: UNK
     Route: 065
  3. DOCETAXEL [Suspect]
     Active Substance: DOCETAXEL
     Indication: Undifferentiated sarcoma
     Dosage: UNK
     Route: 065
  4. DOXORUBICIN [Suspect]
     Active Substance: DOXORUBICIN
     Indication: Undifferentiated sarcoma
     Dosage: UNK
     Route: 065
  5. ETOPOSIDE [Suspect]
     Active Substance: ETOPOSIDE
     Indication: Undifferentiated sarcoma
     Dosage: UNK
     Route: 065
  6. IFOSFAMIDE [Suspect]
     Active Substance: IFOSFAMIDE
     Indication: Undifferentiated sarcoma
     Dosage: UNK
     Route: 065
  7. TOPOTECAN [Suspect]
     Active Substance: TOPOTECAN HYDROCHLORIDE
     Indication: Undifferentiated sarcoma
     Dosage: UNK
     Route: 065
  8. VINCRISTINE [Suspect]
     Active Substance: VINCRISTINE
     Indication: Undifferentiated sarcoma
     Dosage: UNK
     Route: 065

REACTIONS (3)
  - Malignant neoplasm progression [Unknown]
  - Undifferentiated sarcoma [Unknown]
  - Product use in unapproved indication [Unknown]
